FAERS Safety Report 5815897-8 (Version None)
Quarter: 2008Q3

REPORT INFORMATION
  Report Type: 
  Country: None (occurrence: None)
  Receive Date: 20080710
  Receipt Date: 20080314
  Transmission Date: 20090109
  Serious: Yes (Death)
  Sender: FDA-Public Use
  Company Number: 2008-0002

PATIENT
  Age: 35 Year
  Sex: Male

DRUGS (2)
  1. CODEINE SUL TAB [Suspect]
  2. CITALOPRAM HYDROBROMIDE [Suspect]

REACTIONS (1)
  - OVERDOSE [None]
